FAERS Safety Report 17864418 (Version 3)
Quarter: 2021Q3

REPORT INFORMATION
  Report Type: Spontaneous
  Country: US (occurrence: US)
  Receive Date: 20200605
  Receipt Date: 20210714
  Transmission Date: 20211014
  Serious: Yes (Death, Other)
  Sender: FDA-Public Use
  Company Number: US-SA-2020SA144940

PATIENT
  Age: 64 Year
  Sex: Female

DRUGS (1)
  1. ZANTAC [Suspect]
     Active Substance: RANITIDINE HYDROCHLORIDE
     Indication: DYSPEPSIA
     Dosage: 75 MG, QD
     Dates: start: 201501, end: 202001

REACTIONS (3)
  - Lung neoplasm malignant [Fatal]
  - Gastric cancer [Fatal]
  - Brain neoplasm malignant [Fatal]
